FAERS Safety Report 23572142 (Version 2)
Quarter: 2024Q1

REPORT INFORMATION
  Report Type: Spontaneous
  Country: US (occurrence: US)
  Receive Date: 20240227
  Receipt Date: 20240319
  Transmission Date: 20240409
  Serious: No
  Sender: FDA-Public Use
  Company Number: US-SA-SAC20240223000711

PATIENT
  Age: 51 Year
  Sex: Female

DRUGS (23)
  1. DUPIXENT [Suspect]
     Active Substance: DUPILUMAB
     Indication: Dermatitis atopic
     Dosage: 1 DF, QW
     Route: 058
     Dates: start: 20220516
  2. METFORMIN [Concomitant]
     Active Substance: METFORMIN HYDROCHLORIDE
  3. ROSUVASTATIN [Concomitant]
     Active Substance: ROSUVASTATIN
  4. METOPROLOL [Concomitant]
     Active Substance: METOPROLOL
  5. LISINOPRIL [Concomitant]
     Active Substance: LISINOPRIL
  6. RINVOQ [Concomitant]
     Active Substance: UPADACITINIB
  7. AMITRIPTYLINE [Concomitant]
     Active Substance: AMITRIPTYLINE
  8. BACLOFEN [Concomitant]
     Active Substance: BACLOFEN
  9. BUPROPION [Concomitant]
     Active Substance: BUPROPION
  10. VITAMIN B12 [Concomitant]
     Active Substance: CYANOCOBALAMIN
  11. DOXEPIN [Concomitant]
     Active Substance: DOXEPIN
  12. ESCITALOPRAM [Concomitant]
     Active Substance: ESCITALOPRAM OXALATE
  13. LEVOTHYROXINE [Concomitant]
     Active Substance: LEVOTHYROXINE\LEVOTHYROXINE SODIUM
  14. MONTELUKAST [Concomitant]
     Active Substance: MONTELUKAST SODIUM
  15. PREDNISONE [Concomitant]
     Active Substance: PREDNISONE
  16. TACROLIMUS [Concomitant]
     Active Substance: TACROLIMUS
  17. CALCIUM [Concomitant]
     Active Substance: CALCIUM
  18. MAGNESIUM [Concomitant]
     Active Substance: MAGNESIUM
  19. VITAMIN D NOS [Concomitant]
     Active Substance: VITAMIN D NOS
  20. AJOVY [Concomitant]
     Active Substance: FREMANEZUMAB-VFRM
  21. ALBUTEROL [Concomitant]
     Active Substance: ALBUTEROL
  22. ALLEGRA [Concomitant]
     Active Substance: FEXOFENADINE HYDROCHLORIDE
  23. VITAMIN D NOS [Concomitant]
     Active Substance: VITAMIN D NOS

REACTIONS (2)
  - Arthralgia [Unknown]
  - Inappropriate schedule of product administration [Unknown]

NARRATIVE: CASE EVENT DATE: 20220517
